FAERS Safety Report 8955807 (Version 2)
Quarter: 2013Q1

REPORT INFORMATION
  Report Type: Report from Study
  Country: US (occurrence: US)
  Receive Date: 20121210
  Receipt Date: 20130103
  Transmission Date: 20140127
  Serious: Yes (Death)
  Sender: FDA-Public Use
  Company Number: US-ASTELLAS-2012US011879

PATIENT
  Sex: Male

DRUGS (7)
  1. ERLOTINIB TABLET [Suspect]
     Indication: METASTATIC SQUAMOUS CELL CARCINOMA
     Dosage: 150 MG, UID/QD
     Route: 048
     Dates: start: 20121110
  2. ERLOTINIB TABLET [Suspect]
     Indication: METASTASES TO LUNG
  3. HYDROCODONE/APAP [Concomitant]
     Indication: PAIN
     Dosage: 1 DF, 10/325, PRN
     Route: 048
  4. LISINOPRIL [Concomitant]
     Indication: HYPERTENSION
     Dosage: 20 MG, BID
     Route: 048
  5. LYRICA [Concomitant]
     Indication: PAIN
     Dosage: 50 MG, QHS
     Route: 048
  6. METOPROLOL [Concomitant]
     Indication: HYPERTENSION
     Dosage: 50 MG, BID
     Route: 048
  7. ZOMETA [Concomitant]
     Indication: HYPERCALCAEMIA
     Dosage: 4 MG, TOTAL DOSE
     Route: 042
     Dates: start: 20121108, end: 20121108

REACTIONS (3)
  - Acute respiratory failure [Fatal]
  - Cardiac arrest [Fatal]
  - Acute myocardial infarction [Fatal]
